FAERS Safety Report 8877653 (Version 1)
Quarter: 2012Q4

REPORT INFORMATION
  Report Type: Spontaneous
  Country: US (occurrence: None)
  Receive Date: 20121031
  Receipt Date: 20121031
  Transmission Date: 20130627
  Serious: No
  Sender: FDA-Public Use
  Company Number: None

PATIENT
  Age: 23 Year
  Sex: Female

DRUGS (1)
  1. MIRENA IUD [Suspect]
     Indication: BIRTH CONTROL
     Dates: start: 20120526, end: 20120527

REACTIONS (2)
  - Uterine perforation [None]
  - Medical device complication [None]
